FAERS Safety Report 8989080 (Version 1)
Quarter: 2012Q4

REPORT INFORMATION
  Report Type: 
  Country: US (occurrence: US)
  Receive Date: 20121228
  Receipt Date: 20121228
  Transmission Date: 20130627
  Serious: Yes (Hospitalization)
  Sender: FDA-Public Use
  Company Number: US-ELI_LILLY_AND_COMPANY-US201212007074

PATIENT

DRUGS (6)
  1. CYMBALTA [Suspect]
     Indication: DEPRESSION
     Dosage: 120mg/nightly
     Dates: start: 2010
  2. ALPRAZOLAM [Concomitant]
  3. LYRICA [Concomitant]
  4. FENTANYL [Concomitant]
  5. IPRATROPIUM [Concomitant]
  6. WARFARIN [Concomitant]

REACTIONS (1)
  - Dyspnoea [Unknown]
